FAERS Safety Report 7766049-6 (Version None)
Quarter: 2011Q3

REPORT INFORMATION
  Report Type: 
  Country: None (occurrence: None)
  Receive Date: 20110921
  Receipt Date: 20110906
  Transmission Date: 20111222
  Serious: Yes (Hospitalization)
  Sender: FDA-Public Use
  Company Number: GB-WATSON-2011-14853

PATIENT
  Age: 35 Year
  Sex: Female

DRUGS (2)
  1. LAMOTRIGINE [Suspect]
     Indication: COMPLEX PARTIAL SEIZURES
     Dosage: 50 MG DAILY
  2. LAMOTRIGINE [Suspect]
     Dosage: 25 MG DAILY

REACTIONS (3)
  - LEUKOPENIA [None]
  - DRUG RASH WITH EOSINOPHILIA AND SYSTEMIC SYMPTOMS [None]
  - SEPTIC SHOCK [None]
